FAERS Safety Report 7057770-6 (Version None)
Quarter: 2010Q4

REPORT INFORMATION
  Report Type: 
  Country: None (occurrence: None)
  Receive Date: 20101022
  Receipt Date: 20101015
  Transmission Date: 20110411
  Serious: Yes (Death, Hospitalization, Other)
  Sender: FDA-Public Use
  Company Number: BR-SANOFI-AVENTIS-2010SA063105

PATIENT
  Age: 58 Year
  Sex: Male

DRUGS (6)
  1. INSULIN GLARGINE [Suspect]
  2. PIOGLITAZONE [Suspect]
  3. INSULIN ASPART [Suspect]
  4. ALL OTHER THERAPEUTIC PRODUCTS [Suspect]
  5. NPH INSULIN [Concomitant]
     Dosage: DOSE:200 UNIT(S)
  6. REGULAR INSULIN [Concomitant]
     Dosage: DOSE:75 UNIT(S)

REACTIONS (6)
  - DIABETES MELLITUS INADEQUATE CONTROL [None]
  - DIABETIC KETOACIDOSIS [None]
  - DRUG INEFFECTIVE [None]
  - HYPERGLYCAEMIA [None]
  - HYPOGLYCAEMIA [None]
  - PNEUMONIA [None]
